FAERS Safety Report 11323093 (Version 3)
Quarter: 2016Q2

REPORT INFORMATION
  Report Type: Spontaneous
  Country: NZ (occurrence: NZ)
  Receive Date: 20150730
  Receipt Date: 20160512
  Transmission Date: 20160815
  Serious: Yes (Death)
  Sender: FDA-Public Use
  Company Number: NZ-ROCHE-1615565

PATIENT
  Age: 52 Year
  Sex: Female

DRUGS (4)
  1. ALEMTUZUMAB [Concomitant]
     Active Substance: ALEMTUZUMAB
  2. FLUDARABINE [Concomitant]
     Active Substance: FLUDARABINE PHOSPHATE
  3. IMMUNOGLOBULIN [Concomitant]
     Active Substance: HUMAN IMMUNOGLOBULIN G
     Route: 042
  4. GANCICLOVIR. [Suspect]
     Active Substance: GANCICLOVIR
     Indication: CYTOMEGALOVIRUS INFECTION
     Route: 065

REACTIONS (3)
  - Pulmonary haemorrhage [Fatal]
  - Lung infection [Fatal]
  - Pneumonitis [Fatal]
